FAERS Safety Report 6718326-5 (Version None)
Quarter: 2010Q2

REPORT INFORMATION
  Report Type: 
  Country: None (occurrence: None)
  Receive Date: 20100510
  Receipt Date: 20100429
  Transmission Date: 20101027
  Serious: Yes (Death)
  Sender: FDA-Public Use
  Company Number: NL-BAXTER-2010BH012089

PATIENT
  Age: 71 Year
  Sex: Female
  Weight: 50 kg

DRUGS (13)
  1. ENDOXAN BAXTER [Suspect]
     Indication: NON-HODGKIN'S LYMPHOMA
     Dosage: 1050MG
     Route: 042
     Dates: start: 20070524, end: 20071018
  2. ENDOXAN BAXTER [Suspect]
     Dosage: 250MG
     Route: 042
     Dates: start: 20080605
  3. MABTHERA [Suspect]
     Indication: NON-HODGKIN'S LYMPHOMA
     Dosage: 525MG
     Route: 042
     Dates: start: 20070524, end: 20071018
  4. MABTHERA [Suspect]
     Dosage: 560MG
     Route: 042
     Dates: start: 20080605
  5. FLUDARA [Suspect]
     Indication: NON-HODGKIN'S LYMPHOMA
     Dosage: 50MG
     Route: 042
     Dates: start: 20080605
  6. VINCRISTINE SULFATE [Suspect]
     Indication: NON-HODGKIN'S LYMPHOMA
     Dosage: 2MG
     Route: 042
     Dates: start: 20070524, end: 20071018
  7. METHYLPREDNISOLONE 4MG TAB [Suspect]
     Indication: NON-HODGKIN'S LYMPHOMA
     Dosage: 100MG
     Route: 048
     Dates: start: 20070524, end: 20071018
  8. CHLORAMBUCIL [Suspect]
     Indication: NON-HODGKIN'S LYMPHOMA
     Dosage: 10X10
     Route: 048
     Dates: start: 20061222, end: 20070422
  9. DEXAMETHASONE [Suspect]
     Indication: DRUG USE FOR UNKNOWN INDICATION
     Dosage: 5X20
     Route: 048
     Dates: start: 20061222, end: 20070422
  10. SULFAMETHOXAZOLE AND TRIMETHOPRIM [Concomitant]
     Indication: DRUG USE FOR UNKNOWN INDICATION
     Dosage: 480
     Route: 048
     Dates: start: 20080605, end: 20090226
  11. COSOPT [Concomitant]
     Indication: DRUG USE FOR UNKNOWN INDICATION
     Dosage: ONBEKEND
     Route: 047
     Dates: start: 20090201
  12. XALATAN [Concomitant]
     Indication: DRUG USE FOR UNKNOWN INDICATION
     Dosage: ONBEKEND
     Route: 047
     Dates: start: 20090201
  13. FOLIC ACID [Concomitant]
     Indication: DRUG USE FOR UNKNOWN INDICATION
     Dosage: 0.5MG
     Route: 048
     Dates: start: 20080605, end: 20090226

REACTIONS (1)
  - PROGRESSIVE MULTIFOCAL LEUKOENCEPHALOPATHY [None]
